FAERS Safety Report 25953698 (Version 1)
Quarter: 2025Q4

REPORT INFORMATION
  Report Type: Spontaneous
  Country: US (occurrence: US)
  Receive Date: 20251023
  Receipt Date: 20251023
  Transmission Date: 20260118
  Serious: Yes (Other)
  Sender: ABBVIE
  Company Number: US-ABBVIE-6511798

PATIENT
  Sex: Female

DRUGS (2)
  1. REFRESH OPTIVE [Suspect]
     Active Substance: CARBOXYMETHYLCELLULOSE SODIUM\GLYCERIN
     Indication: Dry eye
     Dosage: ROA- OPHTHALMIC
     Route: 065
  2. REFRESH CELLUVISC [Suspect]
     Active Substance: CARBOXYMETHYLCELLULOSE SODIUM
     Indication: Graves^ disease
     Dosage: ROA- OPHTHALMIC
     Route: 065

REACTIONS (3)
  - Eye operation [Unknown]
  - Eye disorder [Unknown]
  - Eye pain [Unknown]
